FAERS Safety Report 8436202-7 (Version None)
Quarter: 2012Q2

REPORT INFORMATION
  Report Type: 
  Country: None (occurrence: None)
  Receive Date: 20120614
  Receipt Date: 20120606
  Transmission Date: 20120825
  Serious: Yes (Hospitalization)
  Sender: FDA-Public Use
  Company Number: GB-NOVOPROD-353282

PATIENT
  Sex: Female

DRUGS (1)
  1. NOVORAPID PENFILL [Suspect]
     Indication: DIABETES MELLITUS
     Dosage: 8-10 IU TDS
     Route: 065

REACTIONS (3)
  - DRUG DOSE OMISSION [None]
  - CHOLELITHIASIS [None]
  - BLOOD GLUCOSE INCREASED [None]
